FAERS Safety Report 12179336 (Version 3)
Quarter: 2016Q2

REPORT INFORMATION
  Report Type: Spontaneous
  Country: US (occurrence: US)
  Receive Date: 20160314
  Receipt Date: 20160401
  Transmission Date: 20160815
  Serious: Yes (Death)
  Sender: FDA-Public Use
  Company Number: PHHY2016US031250

PATIENT
  Age: 4 Month
  Sex: Female

DRUGS (8)
  1. DEXTROSE. [Concomitant]
     Active Substance: DEXTROSE
     Dosage: 18.7 MG/KG PER MINUTE
     Route: 042
  2. OCTREOTIDE. [Suspect]
     Active Substance: OCTREOTIDE
     Dosage: 5 UG/KG, QD AT 3 P.M
     Route: 058
  3. DEXTROSE. [Concomitant]
     Active Substance: DEXTROSE
     Indication: HYPOGLYCAEMIA NEONATAL
     Dosage: 14 MG/KG PER MINUTE
     Route: 042
  4. DIAZOXIDE [Concomitant]
     Active Substance: DIAZOXIDE
     Indication: FLUID RETENTION
     Dosage: UNK
     Route: 065
  5. CHLOROTHIAZIDE. [Concomitant]
     Active Substance: CHLOROTHIAZIDE
     Indication: FLUID RETENTION
     Route: 065
  6. RANITIDINE. [Concomitant]
     Active Substance: RANITIDINE
     Indication: FEEDING INTOLERANCE
     Dosage: UNK
     Route: 048
  7. OCTREOTIDE. [Suspect]
     Active Substance: OCTREOTIDE
     Indication: HYPERINSULINISM
     Dosage: 3 UG/KG, QD AT 8 A.M
     Route: 058
  8. DEXTROSE. [Concomitant]
     Active Substance: DEXTROSE
     Dosage: 9.4 MG/KG PER MINUTE, CONCENTRATION: 20 %
     Route: 042

REACTIONS (8)
  - Decreased activity [Fatal]
  - Tachycardia [Fatal]
  - Necrotising enterocolitis neonatal [Fatal]
  - Abdominal distension [Fatal]
  - Hypotension [Fatal]
  - Overgrowth bacterial [Fatal]
  - Hypernatraemia [Fatal]
  - Metabolic acidosis [Fatal]
